FAERS Safety Report 16648967 (Version 1)
Quarter: 2019Q3

REPORT INFORMATION
  Report Type: Spontaneous
  Country: US (occurrence: US)
  Receive Date: 20190730
  Receipt Date: 20190730
  Transmission Date: 20191004
  Serious: Yes (Other)
  Sender: FDA-Public Use
  Company Number: US-TEVA-2019-US-1083512

PATIENT
  Sex: Female
  Weight: 140 kg

DRUGS (1)
  1. PIOGLITAZONE. [Suspect]
     Active Substance: PIOGLITAZONE
     Indication: PRODUCT USED FOR UNKNOWN INDICATION
     Route: 065
     Dates: start: 201805, end: 20190718

REACTIONS (10)
  - Myalgia [Unknown]
  - Oedema peripheral [Unknown]
  - Blood glucose increased [Unknown]
  - Tooth fracture [Unknown]
  - Upper respiratory tract infection [Unknown]
  - Pruritus [Unknown]
  - Arthralgia [Unknown]
  - Dyspnoea [Unknown]
  - Fatigue [Unknown]
  - Weight increased [Unknown]

NARRATIVE: CASE EVENT DATE: 201805
